FAERS Safety Report 6919465-6 (Version None)
Quarter: 2010Q3

REPORT INFORMATION
  Report Type: 
  Country: None (occurrence: None)
  Receive Date: 20100811
  Receipt Date: 20100805
  Transmission Date: 20110219
  Serious: Yes (Hospitalization)
  Sender: FDA-Public Use
  Company Number: B0669182A

PATIENT
  Age: 74 Year
  Sex: Female

DRUGS (1)
  1. PAXIL [Suspect]
     Indication: DEPRESSIVE SYMPTOM
     Dosage: 10MG PER DAY
     Route: 048
     Dates: start: 20100701

REACTIONS (4)
  - ABDOMINAL DISCOMFORT [None]
  - BEDRIDDEN [None]
  - DECREASED APPETITE [None]
  - DIZZINESS [None]
